FAERS Safety Report 10035893 (Version 2)
Quarter: 2014Q1

REPORT INFORMATION
  Report Type: Spontaneous
  Country: PR (occurrence: PR)
  Receive Date: 20140325
  Receipt Date: 20140325
  Transmission Date: 20141002
  Serious: No
  Sender: FDA-Public Use
  Company Number: PR-BAXTER-2014BAX011004

PATIENT
  Sex: 0

DRUGS (9)
  1. 70% DEXTROSE INJECTION USP [Suspect]
     Indication: NUTRITIONAL SUPPLEMENTATION
     Route: 065
     Dates: start: 20140227, end: 20140227
  2. STERILE WATER FOR INJECTION USP [Suspect]
     Indication: NUTRITIONAL SUPPLEMENTATION
     Route: 065
     Dates: start: 20140227, end: 20140227
  3. 10% TRAVASOL? (AMINO ACID) INJECTION [Suspect]
     Indication: NUTRITIONAL SUPPLEMENTATION
     Route: 065
     Dates: start: 20140227, end: 20140227
  4. INTRALIPID I.V. FAT EMULSION 30%- [Suspect]
     Indication: NUTRITIONAL SUPPLEMENTATION
     Route: 065
     Dates: start: 20140227, end: 20140227
  5. CA GLUCONATE [Suspect]
     Indication: NUTRITIONAL SUPPLEMENTATION
     Route: 065
     Dates: start: 20140227, end: 20140227
  6. K CHLORIDE [Suspect]
     Indication: NUTRITIONAL SUPPLEMENTATION
     Route: 065
     Dates: start: 20140227, end: 20140227
  7. SODIUM CHLORIDE [Suspect]
     Indication: NUTRITIONAL SUPPLEMENTATION
     Route: 065
     Dates: start: 20140227, end: 20140227
  8. MG SULFATE [Suspect]
     Indication: NUTRITIONAL SUPPLEMENTATION
     Route: 065
     Dates: start: 20140227, end: 20140227
  9. SODIUM ACETATE [Suspect]
     Indication: NUTRITIONAL SUPPLEMENTATION
     Route: 065
     Dates: start: 20140227, end: 20140227

REACTIONS (2)
  - Incorrect drug administration rate [Recovered/Resolved]
  - No adverse event [Recovered/Resolved]
